FAERS Safety Report 12238033 (Version 1)
Quarter: 2016Q2

REPORT INFORMATION
  Report Type: Spontaneous
  Country: BA (occurrence: BA)
  Receive Date: 20160405
  Receipt Date: 20160405
  Transmission Date: 20160815
  Serious: Yes (Death, Other)
  Sender: FDA-Public Use
  Company Number: BA-BAYER-2016-060910

PATIENT
  Age: 76 Year
  Sex: Male

DRUGS (1)
  1. STIVARGA [Suspect]
     Active Substance: REGORAFENIB
     Indication: COLON CANCER
     Dosage: 120 MG, UNK
     Dates: start: 20160301

REACTIONS (2)
  - Death [Fatal]
  - Ileus [None]

NARRATIVE: CASE EVENT DATE: 201603
